FAERS Safety Report 8669074 (Version 2)
Quarter: 2012Q4

REPORT INFORMATION
  Report Type: 
  Country: AU (occurrence: AU)
  Receive Date: 20120717
  Receipt Date: 20120830
  Transmission Date: 20130627
  Serious: Yes (Hospitalization)
  Sender: FDA-Public Use
  Company Number: PHHY2012AU060790

PATIENT
  Age: 42 Year
  Sex: Male

DRUGS (1)
  1. CLOZARIL [Suspect]
     Dosage: 500 mg, UNK
     Dates: start: 20040713

REACTIONS (2)
  - Hand fracture [Recovered/Resolved]
  - Laceration [Recovered/Resolved]
